FAERS Safety Report 17037874 (Version 2)
Quarter: 2019Q4

REPORT INFORMATION
  Report Type: Spontaneous
  Country: US (occurrence: US)
  Receive Date: 20191115
  Receipt Date: 20191119
  Transmission Date: 20200122
  Serious: Yes (Disabling, Other)
  Sender: FDA-Public Use
  Company Number: US-PFIZER INC-2019452757

PATIENT
  Age: 66 Year
  Sex: Male

DRUGS (3)
  1. DILANTIN [Suspect]
     Active Substance: PHENYTOIN
     Dosage: 4 DF, DAILY, ALTERNATE DAY (ONE IN MORNING, ONE AFTERNOON AND TWO AT NIGHT)
  2. DILANTIN [Suspect]
     Active Substance: PHENYTOIN
     Dosage: 3 DF, DAILY, ALTERNATE DAY (ONE MORNING, ONE IN AFTERNOON AND ONE AT NIGHT)
  3. DILANTIN [Suspect]
     Active Substance: PHENYTOIN
     Dosage: 200 MG, 2X/DAY

REACTIONS (2)
  - Memory impairment [Unknown]
  - Cerebrovascular accident [Unknown]
